FAERS Safety Report 19655629 (Version 1)
Quarter: 2021Q3

REPORT INFORMATION
  Report Type: Spontaneous
  Country: US (occurrence: US)
  Receive Date: 20210803
  Receipt Date: 20210803
  Transmission Date: 20211014
  Serious: Yes (Other)
  Sender: FDA-Public Use
  Company Number: None

PATIENT
  Age: 31 Year
  Sex: Female
  Weight: 86.85 kg

DRUGS (13)
  1. MISOPRISTOL [Concomitant]
  2. IBUPROFEN. [Concomitant]
     Active Substance: IBUPROFEN
  3. XYZAL [Concomitant]
     Active Substance: LEVOCETIRIZINE DIHYDROCHLORIDE
  4. PHENTERMINE 37.5MG [Suspect]
     Active Substance: PHENTERMINE
     Indication: WEIGHT DECREASED
     Dates: start: 20210715, end: 20210803
  5. ALBUTEROL PRN [Concomitant]
  6. TIZANIDINE. [Concomitant]
     Active Substance: TIZANIDINE
  7. BENADRYL PRN [Concomitant]
  8. TOPIRAMATE. [Concomitant]
     Active Substance: TOPIRAMATE
  9. TRAZODONE [Concomitant]
     Active Substance: TRAZODONE HYDROCHLORIDE
  10. VALTREX [Concomitant]
     Active Substance: VALACYCLOVIR HYDROCHLORIDE
  11. TRAMADOL. [Concomitant]
     Active Substance: TRAMADOL
  12. CLINDAMYCIN LOTION [Concomitant]
  13. MELATONIN [Concomitant]
     Active Substance: MELATONIN

REACTIONS (5)
  - Migraine [None]
  - Nausea [None]
  - Vision blurred [None]
  - Dizziness [None]
  - Vomiting [None]

NARRATIVE: CASE EVENT DATE: 20210803
